FAERS Safety Report 9422294 (Version 2)
Quarter: 2013Q3

REPORT INFORMATION
  Report Type: Spontaneous
  Country: US (occurrence: US)
  Receive Date: 20130726
  Receipt Date: 20130903
  Transmission Date: 20140515
  Serious: No
  Sender: FDA-Public Use
  Company Number: US-PFIZER INC-2013215521

PATIENT
  Age: 66 Year
  Sex: Female
  Weight: 58.05 kg

DRUGS (3)
  1. PREMARIN [Suspect]
     Indication: VULVOVAGINAL DRYNESS
     Dosage: 1 G, 2X/WEEK
     Route: 067
     Dates: end: 201212
  2. HYDROMORPHONE [Suspect]
     Indication: COMPLEX REGIONAL PAIN SYNDROME
     Dosage: UNK
  3. HYDROCODONE W/ACETAMINOPHEN [Concomitant]
     Indication: COMPLEX REGIONAL PAIN SYNDROME
     Dosage: HYDROCODONE 10MG/ACETAMINOPHEN 325MG, AS NEEDED

REACTIONS (5)
  - Hyperhidrosis [Not Recovered/Not Resolved]
  - Night sweats [Not Recovered/Not Resolved]
  - Hot flush [Not Recovered/Not Resolved]
  - Asthenia [Unknown]
  - Sleep disorder [Unknown]
